FAERS Safety Report 12156846 (Version 2)
Quarter: 2016Q1

REPORT INFORMATION
  Report Type: Other
  Country: NL (occurrence: NL)
  Receive Date: 20160307
  Receipt Date: 20160324
  Transmission Date: 20160526
  Serious: Yes (Hospitalization)
  Sender: FDA-Public Use
  Company Number: NL-RARE DISEASE THERAPEUTICS, INC.-1048762

PATIENT
  Age: 22 Year
  Sex: Female

DRUGS (4)
  1. PURIXAN [Suspect]
     Active Substance: MERCAPTOPURINE
     Indication: COLITIS ULCERATIVE
     Route: 048
  2. INFLIXIMAB [Suspect]
     Active Substance: INFLIXIMAB
  3. ALLOPURINOL. [Suspect]
     Active Substance: ALLOPURINOL
  4. MESALAMINE. [Suspect]
     Active Substance: MESALAMINE

REACTIONS (4)
  - Respiratory failure [Unknown]
  - Viral tonsillitis [Unknown]
  - Off label use [Unknown]
  - Dysphagia [Unknown]
